FAERS Safety Report 5494638-0 (Version None)
Quarter: 2007Q4

REPORT INFORMATION
  Report Type: 
  Country: None (occurrence: None)
  Receive Date: 20071015
  Receipt Date: 20070828
  Transmission Date: 20080405
  Serious: No
  Sender: FDA-Public Use
  Company Number: 2007SP002046

PATIENT
  Age: 72 Year
  Sex: Female
  Weight: 58.9676 kg

DRUGS (5)
  1. LUNESTA [Suspect]
     Indication: INSOMNIA
     Dosage: 3 MG; HS; ORAL
     Route: 048
     Dates: start: 20050101, end: 20070530
  2. COZAAR [Concomitant]
  3. CRESTOR [Concomitant]
  4. NEXIUM [Concomitant]
  5. PAIN MEDICATION [Concomitant]

REACTIONS (2)
  - DYSPNOEA [None]
  - MIDDLE INSOMNIA [None]
